FAERS Safety Report 6412822-6 (Version None)
Quarter: 2009Q4

REPORT INFORMATION
  Report Type: 
  Country: None (occurrence: None)
  Receive Date: 20091023
  Receipt Date: 20091015
  Transmission Date: 20100525
  Serious: Yes (Hospitalization)
  Sender: FDA-Public Use
  Company Number: PR-SANOFI-SYNTHELABO-F01200900923

PATIENT
  Sex: Male

DRUGS (16)
  1. XANAX [Concomitant]
     Dosage: UNK
     Route: 065
     Dates: start: 20090601
  2. VFEND [Concomitant]
     Dosage: UNK
     Route: 065
     Dates: start: 20090707
  3. BACTRIM DS [Concomitant]
     Dosage: UNK
     Route: 065
     Dates: start: 20090602
  4. ACTOS [Concomitant]
     Dosage: UNK
     Route: 065
  5. PROTONIX [Concomitant]
     Dosage: UNK
     Route: 065
     Dates: start: 20090602
  6. COMPAZINE [Concomitant]
     Dosage: UNK
     Route: 065
     Dates: start: 20090327
  7. ZOFRAN [Concomitant]
     Dosage: UNK
     Route: 065
     Dates: start: 20090327
  8. MICAFUNGIN [Concomitant]
     Dosage: UNK
     Route: 065
     Dates: start: 20090705
  9. SITAGLIPTIN [Concomitant]
     Dosage: UNK
     Route: 065
  10. METFORMIN HCL [Concomitant]
     Dosage: UNK
     Route: 065
  11. MAGNESIUM OXIDE [Concomitant]
     Dosage: UNK
     Route: 065
     Dates: start: 20090702
  12. REGULAR INSULIN [Concomitant]
     Dosage: UNK
     Route: 065
  13. MABTHERA [Suspect]
     Dosage: 375 MG/M2
     Route: 042
     Dates: start: 20090727, end: 20090727
  14. PEGFILGRASTIM [Suspect]
     Dosage: 6 MG
     Route: 058
     Dates: start: 20090729
  15. GEMCITABINE [Suspect]
     Dosage: 1000 MG/M2
     Route: 042
     Dates: start: 20090728, end: 20090728
  16. OXALIPLATIN [Suspect]
     Indication: B-CELL LYMPHOMA
     Dosage: 100 MG/M2
     Route: 041
     Dates: start: 20090728, end: 20090728

REACTIONS (2)
  - FEBRILE NEUTROPENIA [None]
  - PLEURAL EFFUSION [None]
